FAERS Safety Report 9580317 (Version 1)
Quarter: 2013Q4

REPORT INFORMATION
  Report Type: Spontaneous
  Country: US (occurrence: None)
  Receive Date: 20131001
  Receipt Date: 20131001
  Transmission Date: 20140711
  Serious: Yes (Hospitalization)
  Sender: FDA-Public Use
  Company Number: None

PATIENT
  Age: 53 None
  Sex: Male
  Weight: 60 kg

DRUGS (1)
  1. SULFAMETHOXAZOLE/TRIMETHOPRIM [Suspect]
     Indication: INFECTION
     Route: 048
     Dates: start: 20130613, end: 20130706

REACTIONS (12)
  - Oropharyngeal pain [None]
  - Pyrexia [None]
  - Nausea [None]
  - Vomiting [None]
  - Diarrhoea [None]
  - Asthenia [None]
  - Pruritus [None]
  - Fatigue [None]
  - Ocular hyperaemia [None]
  - Eye pruritus [None]
  - Urticaria [None]
  - Stomatitis [None]
